FAERS Safety Report 24980628 (Version 1)
Quarter: 2025Q1

REPORT INFORMATION
  Report Type: Spontaneous
  Country: US (occurrence: None)
  Receive Date: 20250214
  Receipt Date: 20250214
  Transmission Date: 20250408
  Serious: No
  Sender: FDA-CTU
  Company Number: None

PATIENT
  Age: 48 Year
  Sex: Female
  Weight: 71.1 kg

DRUGS (3)
  1. FLUCONAZOLE [Suspect]
     Active Substance: FLUCONAZOLE
     Indication: Fungal infection
     Route: 048
     Dates: start: 20250212, end: 20250212
  2. DESVENLAFAXINE [Concomitant]
     Active Substance: DESVENLAFAXINE
  3. Multimitamins [Concomitant]

REACTIONS (1)
  - Intermenstrual bleeding [None]

NARRATIVE: CASE EVENT DATE: 20250213
